FAERS Safety Report 24459705 (Version 1)
Quarter: 2024Q4

REPORT INFORMATION
  Report Type: Spontaneous
  Country: NL (occurrence: NL)
  Receive Date: 20241018
  Receipt Date: 20241018
  Transmission Date: 20250115
  Serious: No
  Sender: ROCHE
  Company Number: NL-ROCHE-3532603

PATIENT
  Age: 28 Year
  Sex: Male

DRUGS (8)
  1. RITUXIMAB [Suspect]
     Active Substance: RITUXIMAB
     Indication: C3 glomerulopathy
     Dosage: 4 INFUSION? FREQUENCY TEXT:WEEKLY
     Route: 042
  2. RITUXIMAB [Suspect]
     Active Substance: RITUXIMAB
     Dosage: 2 INFUSION , 4 AND 6 WEEKS THEREAFTER? FREQUENCY TEXT:WEEKLY
     Route: 042
  3. BUMETANIDE [Concomitant]
     Active Substance: BUMETANIDE
  4. PREDNISOLONE [Concomitant]
     Active Substance: PREDNISOLONE
  5. AVACOPAN [Concomitant]
     Active Substance: AVACOPAN
  6. DANICOPAN [Concomitant]
     Active Substance: DANICOPAN
  7. METHYLPREDNISOLONE [Concomitant]
     Active Substance: METHYLPREDNISOLONE
     Dosage: FOR 3 CONSECUTIVE DAYS
  8. BELIMUMAB [Concomitant]
     Active Substance: BELIMUMAB
     Dosage: FREQUENCY TEXT:WEEKLY
     Route: 058

REACTIONS (2)
  - Off label use [Unknown]
  - No adverse event [Unknown]
